FAERS Safety Report 11519820 (Version 1)
Quarter: 2015Q3

REPORT INFORMATION
  Report Type: Spontaneous
  Country: US (occurrence: None)
  Receive Date: 20150917
  Receipt Date: 20150917
  Transmission Date: 20151125
  Serious: Yes (Hospitalization)
  Sender: FDA-Public Use
  Company Number: None

PATIENT
  Age: 82 Year
  Sex: Female
  Weight: 73.5 kg

DRUGS (1)
  1. CARIMUNE [Suspect]
     Active Substance: HUMAN IMMUNOGLOBULIN G
     Indication: IMMUNE THROMBOCYTOPENIC PURPURA
     Route: 042
     Dates: start: 20150827, end: 20150828

REACTIONS (7)
  - Acute kidney injury [None]
  - Headache [None]
  - Hypophagia [None]
  - Vomiting [None]
  - Urine output decreased [None]
  - Renal atrophy [None]
  - Feeling abnormal [None]

NARRATIVE: CASE EVENT DATE: 20150901
